FAERS Safety Report 7444910-X (Version None)
Quarter: 2011Q2

REPORT INFORMATION
  Report Type: 
  Country: None (occurrence: None)
  Receive Date: 20110427
  Receipt Date: 20110427
  Transmission Date: 20111010
  Serious: Yes (Life-Threatening, Hospitalization)
  Sender: FDA-Public Use
  Company Number: None

PATIENT
  Age: 62 Year
  Sex: Female
  Weight: 108.8633 kg

DRUGS (1)
  1. GEODON [Suspect]
     Indication: SCHIZOAFFECTIVE DISORDER
     Dosage: TWICE DAY PO
     Route: 048
     Dates: start: 20110201, end: 20110303

REACTIONS (10)
  - ABASIA [None]
  - LOSS OF CONSCIOUSNESS [None]
  - APHASIA [None]
  - LETHARGY [None]
  - HYPOTENSION [None]
  - NEUROLEPTIC MALIGNANT SYNDROME [None]
  - PULMONARY OEDEMA [None]
  - ACTIVITIES OF DAILY LIVING IMPAIRED [None]
  - PALLOR [None]
  - CHILLS [None]
